FAERS Safety Report 9868162 (Version 4)
Quarter: 2014Q2

REPORT INFORMATION
  Report Type: Spontaneous
  Country: GB (occurrence: GB)
  Receive Date: 20140204
  Receipt Date: 20140602
  Transmission Date: 20141212
  Serious: Yes (Hospitalization)
  Sender: FDA-Public Use
  Company Number: PHFR2014GB001181

PATIENT
  Age: 25 Year
  Sex: Male
  Weight: 96.55 kg

DRUGS (3)
  1. CLOZARIL [Suspect]
     Indication: SCHIZOPHRENIA, PARANOID TYPE
     Dosage: UNK
     Route: 048
     Dates: start: 20130517
  2. CLOZARIL [Suspect]
     Dosage: UNK
     Route: 048
  3. DEPIXOL [Concomitant]

REACTIONS (1)
  - Mental impairment [Recovering/Resolving]
